FAERS Safety Report 16219012 (Version 4)
Quarter: 2020Q1

REPORT INFORMATION
  Report Type: Spontaneous
  Country: US (occurrence: US)
  Receive Date: 20190419
  Receipt Date: 20200207
  Transmission Date: 20200409
  Serious: Yes (Other)
  Sender: FDA-Public Use
  Company Number: US-ASTRAZENECA-2019SE57156

PATIENT
  Age: 910 Month
  Sex: Female
  Weight: 91.2 kg

DRUGS (4)
  1. TAGRISSO [Suspect]
     Active Substance: OSIMERTINIB
     Indication: LUNG NEOPLASM MALIGNANT
     Route: 048
     Dates: start: 201902, end: 201903
  2. TAGRISSO [Suspect]
     Active Substance: OSIMERTINIB
     Indication: LUNG NEOPLASM MALIGNANT
     Route: 048
     Dates: start: 201904
  3. FLECAINIDE [Concomitant]
     Active Substance: FLECAINIDE
  4. CARDIZEM [Concomitant]
     Active Substance: DILTIAZEM HYDROCHLORIDE
     Route: 048

REACTIONS (19)
  - Brain neoplasm [Unknown]
  - Body height decreased [Unknown]
  - Tremor [Not Recovered/Not Resolved]
  - Dizziness [Not Recovered/Not Resolved]
  - Feeling abnormal [Recovering/Resolving]
  - Fall [Unknown]
  - Decreased appetite [Recovering/Resolving]
  - Alopecia [Unknown]
  - Gait disturbance [Unknown]
  - Loss of control of legs [Recovered/Resolved with Sequelae]
  - Inner ear disorder [Unknown]
  - Weight decreased [Unknown]
  - Headache [Unknown]
  - Hypotension [Unknown]
  - Concussion [Unknown]
  - Medication error [Unknown]
  - Rib fracture [Unknown]
  - Dysstasia [Recovering/Resolving]
  - Vision blurred [Unknown]

NARRATIVE: CASE EVENT DATE: 201901
